FAERS Safety Report 9361774 (Version 2)
Quarter: 2013Q2

REPORT INFORMATION
  Report Type: Spontaneous
  Country: GB (occurrence: GB)
  Receive Date: 20130621
  Receipt Date: 20130627
  Transmission Date: 20140414
  Serious: Yes (Other)
  Sender: FDA-Public Use
  Company Number: PHFR2013GB003451

PATIENT
  Age: 8 Year
  Sex: Female

DRUGS (5)
  1. METHOTREXATE [Suspect]
     Indication: PROPHYLAXIS AGAINST GRAFT VERSUS HOST DISEASE
  2. CICLOSPORIN [Suspect]
     Indication: PROPHYLAXIS AGAINST GRAFT VERSUS HOST DISEASE
  3. BUSULFAN [Suspect]
     Indication: THALASSAEMIA BETA
     Dosage: 14 MG/KG, UNK
  4. CYCLOPHOSPHAMIDE [Suspect]
     Indication: THALASSAEMIA BETA
     Dosage: 200 MG/KG, UNK
  5. ALEMTUZUMAB [Suspect]
     Indication: THALASSAEMIA BETA
     Dosage: 0.3 MG/KG, UNK

REACTIONS (9)
  - Pulmonary veno-occlusive disease [Unknown]
  - Cytomegalovirus infection [Unknown]
  - Mucosal inflammation [Unknown]
  - Sepsis [Unknown]
  - Pulmonary haemorrhage [Unknown]
  - Pneumonitis [Unknown]
  - Pulmonary hypertension [Unknown]
  - Respiratory failure [Unknown]
  - Idiopathic pneumonia syndrome [Unknown]
